FAERS Safety Report 9567011 (Version 1)
Quarter: 2013Q3

REPORT INFORMATION
  Report Type: Spontaneous
  Country: US (occurrence: US)
  Receive Date: 20130930
  Receipt Date: 20130930
  Transmission Date: 20140515
  Serious: No
  Sender: FDA-Public Use
  Company Number: US-AMGEN-USASP2012060686

PATIENT
  Sex: Female
  Weight: 64.4 kg

DRUGS (10)
  1. ENBREL [Suspect]
     Indication: PRODUCT USED FOR UNKNOWN INDICATION
     Dosage: 50 MG, QWK
     Route: 058
  2. METHOTREXATE [Concomitant]
     Dosage: 2.5 MG, UNK
     Route: 048
  3. PREDNISONE [Concomitant]
     Dosage: 1 MG, UNK
  4. PREMARIN VAGINAL [Concomitant]
     Dosage: 0.625 MG
  5. ATORVASTATIN [Concomitant]
     Dosage: 10 MG, UNK
  6. FOLIC ACID [Concomitant]
     Dosage: UNK
  7. CALCIUM 500+D [Concomitant]
  8. MULTIVITAMIN                       /00097801/ [Concomitant]
     Dosage: UNK
  9. MAGNESIUM [Concomitant]
     Dosage: 300 MG, UNK
  10. FISH OIL [Concomitant]
     Dosage: UNK

REACTIONS (1)
  - Injection site reaction [Unknown]
